FAERS Safety Report 10436203 (Version 1)
Quarter: 2014Q3

REPORT INFORMATION
  Report Type: Spontaneous
  Country: GB (occurrence: GB)
  Receive Date: 20140908
  Receipt Date: 20140908
  Transmission Date: 20150326
  Serious: Yes (Hospitalization, Other)
  Sender: FDA-Public Use
  Company Number: GB-TEVA-505243ISR

PATIENT
  Age: 73 Year
  Sex: Female
  Weight: 83.46 kg

DRUGS (17)
  1. PANTOPRAZOLE [Concomitant]
     Active Substance: PANTOPRAZOLE SODIUM
     Dosage: 40 MILLIGRAM DAILY;
     Route: 048
  2. NICORANDIL [Concomitant]
     Active Substance: NICORANDIL
     Dosage: 10 MILLIGRAM DAILY; HALF A TABLET TWICE A DAY
     Route: 048
  3. LYRICA [Concomitant]
     Active Substance: PREGABALIN
     Dosage: NOW STOPPED.
  4. SIMVASTATIN. [Suspect]
     Active Substance: SIMVASTATIN
     Dosage: 40 MILLIGRAM DAILY; ONE AT NIGHT
     Route: 048
  5. REMEDEINE [Concomitant]
     Dosage: 2 TABLETS FOUR TIMES A DAY WHEN REQUIRED.
     Route: 048
  6. EZETIMIBE. [Concomitant]
     Active Substance: EZETIMIBE
     Dosage: 10 MILLIGRAM DAILY;
     Route: 048
  7. GTN [Concomitant]
     Active Substance: NITROGLYCERIN
     Indication: CHEST PAIN
     Dosage: DISSOLVE ONE TABLET UNDER THE TONGUE WHEN REQUIRED FOR CHEST PAIN
     Route: 060
  8. SALBUTAMOL [Concomitant]
     Active Substance: ALBUTEROL
     Dosage: ONE TO TWO PUFFS AS REQUIRED
     Route: 055
  9. METHOTREXATE [Concomitant]
     Active Substance: METHOTREXATE
     Dosage: NOW STOPPED.
  10. PREDNISOLONE. [Concomitant]
     Active Substance: PREDNISOLONE
     Dosage: 15 MILLIGRAM DAILY;
  11. RAMIPRIL. [Concomitant]
     Active Substance: RAMIPRIL
     Dosage: 2.5 MILLIGRAM DAILY; ONE TO BE TAKEN EACH MORNING
     Route: 048
  12. FLUOXETINE [Concomitant]
     Active Substance: FLUOXETINE\FLUOXETINE HYDROCHLORIDE
     Dosage: 40 MILLIGRAM DAILY;
     Route: 048
  13. CLOPIDOGREL [Concomitant]
     Active Substance: CLOPIDOGREL BISULFATE
     Dosage: 75 MILLIGRAM DAILY;
     Route: 048
  14. TILDIEM LA [Concomitant]
     Active Substance: DILTIAZEM HYDROCHLORIDE
     Dosage: 300 MILLIGRAM DAILY;
     Route: 048
  15. CARBOMER [Concomitant]
     Active Substance: CARBOMER
     Dosage: USE WHEN REQUIRED FOR DRY EYES
     Route: 047
  16. BUDESONIDE. [Concomitant]
     Active Substance: BUDESONIDE
     Dosage: 200 MICROGRAM DAILY;
     Route: 055
  17. DIPYRIDAMOLE. [Concomitant]
     Active Substance: DIPYRIDAMOLE
     Dosage: 400 MILLIGRAM DAILY;
     Route: 048

REACTIONS (11)
  - Dry mouth [Recovering/Resolving]
  - Malaise [Recovering/Resolving]
  - Tremor [Recovering/Resolving]
  - Mood swings [Recovering/Resolving]
  - Pruritus [Recovering/Resolving]
  - Dry eye [Recovering/Resolving]
  - Nasal dryness [Recovering/Resolving]
  - Pain in extremity [Recovering/Resolving]
  - Arthralgia [Recovering/Resolving]
  - Hyperhidrosis [Recovering/Resolving]
  - Headache [Recovering/Resolving]
